FAERS Safety Report 8786599 (Version 2)
Quarter: 2012Q4

REPORT INFORMATION
  Report Type: 
  Country: BE (occurrence: BE)
  Receive Date: 20120914
  Receipt Date: 20121116
  Transmission Date: 20130627
  Serious: Yes (Congenital Anomaly)
  Sender: FDA-Public Use
  Company Number: BE-BIOGENIDEC-2012BI035778

PATIENT

DRUGS (1)
  1. TYSABRI [Suspect]
     Indication: CROHN^S DISEASE

REACTIONS (1)
  - Polydactyly [Unknown]
